FAERS Safety Report 8151175-2 (Version None)
Quarter: 2012Q1

REPORT INFORMATION
  Report Type: 
  Country: None (occurrence: None)
  Receive Date: 20120220
  Receipt Date: 20120214
  Transmission Date: 20120608
  Serious: Yes (Death)
  Sender: FDA-Public Use
  Company Number: AT-GLAXOSMITHKLINE-B0782392A

PATIENT
  Age: 68 Year
  Sex: Female

DRUGS (2)
  1. CIPRALEX [Concomitant]
  2. WELLBUTRIN [Suspect]
     Indication: PRODUCT USED FOR UNKNOWN INDICATION
     Route: 065
     Dates: start: 20120202

REACTIONS (1)
  - SUDDEN DEATH [None]
